FAERS Safety Report 7778192-6 (Version None)
Quarter: 2011Q3

REPORT INFORMATION
  Report Type: 
  Country: None (occurrence: None)
  Receive Date: 20110922
  Receipt Date: 20110907
  Transmission Date: 20111222
  Serious: Yes (Other)
  Sender: FDA-Public Use
  Company Number: AUR-APL-2011-01173

PATIENT
  Age: 78 Year
  Sex: Female

DRUGS (2)
  1. TRAMADOL HCL [Suspect]
     Indication: PAIN
     Dosage: (100 MG, 1 D), ORAL
     Route: 048
  2. CITALOPRAM HYDROBROMIDE [Suspect]
     Indication: DEPRESSION
     Dosage: (20 MG, 1 D), ORAL
     Route: 048
     Dates: end: 20100101

REACTIONS (9)
  - HYPERTONIA [None]
  - EXTENSOR PLANTAR RESPONSE [None]
  - SEROTONIN SYNDROME [None]
  - DRUG INTERACTION [None]
  - MYOCLONUS [None]
  - CONFUSIONAL STATE [None]
  - HYPERREFLEXIA [None]
  - TACHYCARDIA [None]
  - FALL [None]
